FAERS Safety Report 8932841 (Version 1)
Quarter: 2012Q4

REPORT INFORMATION
  Report Type: 
  Country: US (occurrence: US)
  Receive Date: 20121129
  Receipt Date: 20121129
  Transmission Date: 20130627
  Serious: No
  Sender: FDA-Public Use
  Company Number: US-BAYER-2012-124964

PATIENT
  Age: 31 Year
  Sex: Female

DRUGS (2)
  1. MIRENA [Suspect]
     Indication: CONTRACEPTION
     Dosage: 20 mcg/24hr, CONT
     Route: 015
     Dates: start: 20121010, end: 20121114
  2. MIRENA [Suspect]
     Indication: HEAVY PERIODS

REACTIONS (3)
  - Device expulsion [None]
  - Menorrhagia [None]
  - Drug ineffective [None]
